FAERS Safety Report 7497558-5 (Version None)
Quarter: 2011Q2

REPORT INFORMATION
  Report Type: 
  Country: None (occurrence: None)
  Receive Date: 20110523
  Receipt Date: 20110518
  Transmission Date: 20111010
  Serious: Yes (Other)
  Sender: FDA-Public Use
  Company Number: US-PFIZER INC-2011105237

PATIENT
  Age: 9 Year
  Sex: Female

DRUGS (11)
  1. AMPICILLIN [Concomitant]
     Route: 042
  2. ESOMEPRAZOLE [Concomitant]
  3. SULFAMETHOXAZOLE AND TRIMETHOPRIM [Concomitant]
     Dosage: 18 MG/KG, 1X/DAY
     Route: 042
  4. VANCOMYCIN [Concomitant]
     Route: 042
  5. CEFTRIAXONE [Concomitant]
     Dosage: UNK
     Route: 042
  6. MEROPENEM [Concomitant]
     Route: 042
  7. AMIKACIN [Concomitant]
  8. GATIFLOXACIN [Concomitant]
  9. CIPROFLOXACIN [Concomitant]
  10. LINEZOLID [Suspect]
     Indication: MENINGITIS
     Dosage: UNK
     Route: 042
  11. SULFAMETHOXAZOLE AND TRIMETHOPRIM [Concomitant]
     Dosage: UNK
     Route: 048

REACTIONS (2)
  - LACTIC ACIDOSIS [None]
  - NEUROPATHY PERIPHERAL [None]
